FAERS Safety Report 6145173-8 (Version None)
Quarter: 2009Q2

REPORT INFORMATION
  Report Type: 
  Country: None (occurrence: None)
  Receive Date: 20090406
  Receipt Date: 20090324
  Transmission Date: 20091009
  Serious: Yes (Hospitalization, Other)
  Sender: FDA-Public Use
  Company Number: VE-BAYER-200914112LA

PATIENT
  Age: 72 Year
  Sex: Female

DRUGS (5)
  1. AVELOX [Suspect]
     Indication: INTERSTITIAL LUNG DISEASE
     Dosage: UNIT DOSE: 400 MG
     Route: 048
     Dates: start: 20090318, end: 20090318
  2. FLUTICASONE PROPIONATE [Concomitant]
     Indication: INTERSTITIAL LUNG DISEASE
     Route: 045
  3. METICORTEN [Concomitant]
     Indication: INTERSTITIAL LUNG DISEASE
     Dosage: UNIT DOSE: 5 MG
     Route: 048
  4. CODIPRONT [Concomitant]
     Indication: INTERSTITIAL LUNG DISEASE
     Dosage: TOTAL DAILY DOSE: 2 CAPSULES
     Route: 048
  5. DIOVAN HCT [Concomitant]
     Indication: HYPERTENSION
     Dosage: 80 MG/ 12,5 MG / DAY
     Route: 048

REACTIONS (3)
  - DYSPHONIA [None]
  - PANIC DISORDER [None]
  - SUFFOCATION FEELING [None]
